FAERS Safety Report 11056159 (Version 1)
Quarter: 2015Q2

REPORT INFORMATION
  Report Type: Spontaneous
  Country: US (occurrence: US)
  Receive Date: 20150422
  Receipt Date: 20150422
  Transmission Date: 20150821
  Serious: Yes (Hospitalization)
  Sender: FDA-Public Use
  Company Number: US-CELGENE-163-21880-13063298

PATIENT
  Age: 60 Year
  Sex: Female
  Weight: 78.3 kg

DRUGS (18)
  1. REVLIMID [Suspect]
     Active Substance: LENALIDOMIDE
     Route: 048
     Dates: start: 20130227, end: 20130524
  2. FENTANYL. [Concomitant]
     Active Substance: FENTANYL
     Indication: PRODUCT USED FOR UNKNOWN INDICATION
     Route: 065
  3. DEXAMETHASONE. [Concomitant]
     Active Substance: DEXAMETHASONE
     Route: 065
     Dates: start: 20051216, end: 20051216
  4. DEXAMETHASONE. [Concomitant]
     Active Substance: DEXAMETHASONE
     Route: 065
     Dates: start: 20031101, end: 20051201
  5. ACETAMINOPHEN. [Concomitant]
     Active Substance: ACETAMINOPHEN
     Indication: PAIN
     Route: 065
  6. DEXAMETHASONE. [Concomitant]
     Active Substance: DEXAMETHASONE
     Route: 065
     Dates: start: 20130313
  7. ACYCLOVIR. [Concomitant]
     Active Substance: ACYCLOVIR
     Indication: ANTIVIRAL PROPHYLAXIS
     Route: 065
  8. PREMARIN [Concomitant]
     Active Substance: ESTROGENS, CONJUGATED
     Indication: MENOPAUSE
     Route: 065
  9. DEXAMETHASONE. [Concomitant]
     Active Substance: DEXAMETHASONE
     Route: 065
     Dates: start: 20130306
  10. DEXAMETHASONE. [Concomitant]
     Active Substance: DEXAMETHASONE
     Route: 065
     Dates: start: 20110608, end: 20130206
  11. REVLIMID [Suspect]
     Active Substance: LENALIDOMIDE
     Indication: PLASMA CELL MYELOMA
     Route: 048
     Dates: start: 20110608, end: 20130206
  12. ENOXAPARIN [Concomitant]
     Active Substance: ENOXAPARIN
     Indication: ANTICOAGULANT THERAPY
     Route: 065
  13. ACY-1215 [Suspect]
     Active Substance: RICOLINOSTAT
     Indication: PLASMA CELL MYELOMA
     Route: 065
     Dates: start: 20130227, end: 20130524
  14. DEXAMETHASONE. [Concomitant]
     Active Substance: DEXAMETHASONE
     Indication: PLASMA CELL MYELOMA
     Route: 065
     Dates: start: 20130227, end: 20130521
  15. ZOLEDRONIC ACID [Concomitant]
     Active Substance: ZOLEDRONIC ACID
     Indication: PRODUCT USED FOR UNKNOWN INDICATION
     Route: 065
     Dates: start: 2005, end: 201208
  16. ZOLEDRONIC ACID [Concomitant]
     Active Substance: ZOLEDRONIC ACID
     Route: 065
     Dates: start: 201301
  17. DEXAMETHASONE. [Concomitant]
     Active Substance: DEXAMETHASONE
     Route: 065
     Dates: start: 20130320, end: 20130524
  18. DOCUSATE [Concomitant]
     Active Substance: DOCUSATE
     Indication: CONSTIPATION
     Route: 065

REACTIONS (1)
  - Plasma cell myeloma [Recovered/Resolved]

NARRATIVE: CASE EVENT DATE: 20130612
